FAERS Safety Report 18035810 (Version 9)
Quarter: 2022Q1

REPORT INFORMATION
  Report Type: Report from Study
  Country: DE (occurrence: DE)
  Receive Date: 20200717
  Receipt Date: 20220307
  Transmission Date: 20220423
  Serious: Yes (Death, Hospitalization, Other)
  Sender: FDA-Public Use
  Company Number: DE-002147023-NVSC2020DE198389

PATIENT
  Age: 64 Year
  Sex: Female

DRUGS (15)
  1. ERENUMAB [Suspect]
     Active Substance: ERENUMAB
     Indication: Migraine
     Dosage: (70/140 MG)
     Route: 058
     Dates: start: 20190729, end: 20190729
  2. ERENUMAB [Suspect]
     Active Substance: ERENUMAB
     Dosage: 70 MILLIGRAM
     Route: 065
     Dates: start: 20190826, end: 20190826
  3. ERENUMAB [Suspect]
     Active Substance: ERENUMAB
     Dosage: 140 MILLIGRAM
     Route: 065
     Dates: start: 20190925, end: 20190925
  4. ERENUMAB [Suspect]
     Active Substance: ERENUMAB
     Dosage: 140 MILLIGRAM
     Route: 065
     Dates: start: 20191021, end: 20191021
  5. ERENUMAB [Suspect]
     Active Substance: ERENUMAB
     Dosage: 140 MILLIGRAM
     Route: 065
     Dates: start: 20191118, end: 20191118
  6. ERENUMAB [Suspect]
     Active Substance: ERENUMAB
     Dosage: 140 MILLIGRAM
     Route: 065
     Dates: start: 20191218, end: 20191218
  7. ERENUMAB [Suspect]
     Active Substance: ERENUMAB
     Dosage: 140 MILLIGRAM
     Route: 065
     Dates: start: 20200117, end: 20200117
  8. ERENUMAB [Suspect]
     Active Substance: ERENUMAB
     Dosage: 140 MILLIGRAM
     Route: 065
     Dates: start: 20200214, end: 20200214
  9. ERENUMAB [Suspect]
     Active Substance: ERENUMAB
     Dosage: 140 MILLIGRAM
     Route: 065
     Dates: start: 20200311, end: 20200311
  10. ERENUMAB [Suspect]
     Active Substance: ERENUMAB
     Dosage: 140 MILLIGRAM
     Route: 065
     Dates: start: 20200409, end: 20200409
  11. ERENUMAB [Suspect]
     Active Substance: ERENUMAB
     Dosage: 140 MILLIGRAM
     Route: 065
     Dates: start: 20200514, end: 20200514
  12. ERENUMAB [Suspect]
     Active Substance: ERENUMAB
     Dosage: 140 MILLIGRAM
     Route: 065
     Dates: start: 20200610, end: 20200610
  13. DOXEPIN [Concomitant]
     Active Substance: DOXEPIN
     Indication: Sleep disorder
     Dosage: 25 MILLIGRAM, QD
     Route: 048
     Dates: start: 20190117
  14. NAPROXEN [Concomitant]
     Active Substance: NAPROXEN
     Indication: Pain
     Dosage: 500 MILLIGRAM, AS NECESSARY
     Route: 048
     Dates: start: 20161207
  15. ZOLMITRIPTAN [Concomitant]
     Active Substance: ZOLMITRIPTAN
     Indication: Migraine
     Dosage: 5 MILLIGRAM, AS NECESSARY
     Route: 048
     Dates: start: 20190802

REACTIONS (23)
  - Diverticulum intestinal [Fatal]
  - Diverticulitis [Fatal]
  - Brain death [Fatal]
  - Cerebral infarction [Fatal]
  - Hemiplegia [Fatal]
  - Coma [Fatal]
  - Mydriasis [Fatal]
  - Brain oedema [Fatal]
  - Atrial fibrillation [Fatal]
  - Pneumomediastinum [Fatal]
  - Haemothorax [Fatal]
  - Thrombosis [Fatal]
  - Osteochondrosis [Fatal]
  - Aortic stenosis [Fatal]
  - Aortic aneurysm [Fatal]
  - Cerebral haemorrhage [Fatal]
  - Haematoma [Fatal]
  - Cardiac tamponade [Fatal]
  - Post procedural haemorrhage [Fatal]
  - Renal cyst [Unknown]
  - Goitre [Unknown]
  - Cerebrosclerosis [Unknown]
  - Therapy non-responder [Unknown]

NARRATIVE: CASE EVENT DATE: 20200101
